FAERS Safety Report 6516142-0 (Version None)
Quarter: 2009Q4

REPORT INFORMATION
  Report Type: 
  Country: None (occurrence: None)
  Receive Date: 20091223
  Receipt Date: 20091220
  Transmission Date: 20100525
  Serious: Yes (Other)
  Sender: FDA-Public Use
  Company Number: US-RB-027204-09

PATIENT
  Age: 44 Year
  Sex: Female

DRUGS (2)
  1. MUCINEX [Suspect]
     Dosage: 1 TAKEN 19 HOURS AGO, ANOTHER 12 HOURS LATER THEN ANOTHER 3 HOURS AGO
     Route: 048
     Dates: start: 20091201
  2. ALBUTEROL [Concomitant]

REACTIONS (2)
  - OVERDOSE [None]
  - TACHYCARDIA [None]
